FAERS Safety Report 10897793 (Version 1)
Quarter: 2015Q1

REPORT INFORMATION
  Report Type: Spontaneous
  Country: US (occurrence: None)
  Receive Date: 20150302
  Receipt Date: 20150302
  Transmission Date: 20150721
  Serious: Yes (Death)
  Sender: FDA-Public Use
  Company Number: None

PATIENT
  Age: 62 Year
  Sex: Male
  Weight: 76.9 kg

DRUGS (1)
  1. CARMUSTINE [Suspect]
     Active Substance: CARMUSTINE
     Indication: TRANSPLANT
     Dosage: ONCE A DAY X 2 DAYS
     Route: 042
     Dates: start: 20140429, end: 20140430

REACTIONS (6)
  - Pulmonary oedema [None]
  - Renal impairment [None]
  - Cardiac disorder [None]
  - Condition aggravated [None]
  - Pyrexia [None]
  - Pulmonary toxicity [None]

NARRATIVE: CASE EVENT DATE: 20150116
